FAERS Safety Report 9436924 (Version 1)
Quarter: 2013Q3

REPORT INFORMATION
  Report Type: Spontaneous
  Country: US (occurrence: US)
  Receive Date: 20130802
  Receipt Date: 20130802
  Transmission Date: 20140515
  Serious: No
  Sender: FDA-Public Use
  Company Number: US-PFIZER INC-2013224167

PATIENT
  Age: 57 Year
  Sex: Female
  Weight: 63.49 kg

DRUGS (4)
  1. LYRICA [Suspect]
     Indication: FIBROMYALGIA
     Dosage: 25 MG, UNK
     Route: 048
  2. LYRICA [Suspect]
     Dosage: 100 MG, 1X/DAY
     Route: 048
  3. ALPRAZOLAM [Concomitant]
     Indication: ANXIETY
     Dosage: UNK
  4. ATORVASTATIN [Concomitant]
     Indication: BLOOD CHOLESTEROL INCREASED
     Dosage: UNK

REACTIONS (3)
  - Drug intolerance [Unknown]
  - Somnolence [Unknown]
  - Fatigue [Unknown]
